FAERS Safety Report 7148810-4 (Version None)
Quarter: 2010Q4

REPORT INFORMATION
  Report Type: 
  Country: None (occurrence: None)
  Receive Date: 20101124
  Receipt Date: 20101116
  Transmission Date: 20110411
  Serious: Yes (Death)
  Sender: FDA-Public Use
  Company Number: UTC-002454

PATIENT
  Age: 84 Year
  Sex: Female
  Weight: 44.5 kg

DRUGS (1)
  1. TYVASO [Suspect]
     Indication: PULMONARY HYPERTENSION
     Dosage: 18 MCG, INHALATION
     Route: 055
     Dates: start: 20101108

REACTIONS (1)
  - UNRESPONSIVE TO STIMULI [None]
